FAERS Safety Report 6478066-7 (Version None)
Quarter: 2009Q4

REPORT INFORMATION
  Report Type: 
  Country: None (occurrence: None)
  Receive Date: 20091202
  Receipt Date: 20091116
  Transmission Date: 20100525
  Serious: Yes (Hospitalization)
  Sender: FDA-Public Use
  Company Number: 1000010349

PATIENT
  Age: 17 Year
  Sex: Female

DRUGS (4)
  1. ESCITALOPRAM [Suspect]
     Dosage: ORAL
     Route: 048
     Dates: start: 20090812, end: 20090812
  2. IMOVANE [Suspect]
     Dosage: ORAL
     Route: 048
     Dates: start: 20090812, end: 20090812
  3. ALPRAZOLAM [Suspect]
     Dosage: ORAL
     Route: 048
     Dates: start: 20090812, end: 20090812
  4. ALCOHOL [Suspect]
     Dates: start: 20090812, end: 20090812

REACTIONS (2)
  - DEPRESSED LEVEL OF CONSCIOUSNESS [None]
  - SUICIDE ATTEMPT [None]
